FAERS Safety Report 10330670 (Version 1)
Quarter: 2014Q3

REPORT INFORMATION
  Report Type: Spontaneous
  Country: IT (occurrence: None)
  Receive Date: 20140717
  Receipt Date: 20140717
  Transmission Date: 20150326
  Serious: Yes (Hospitalization)
  Sender: FDA-Public Use
  Company Number: DEP_02188_2014

PATIENT
  Age: 23 Year
  Sex: Male

DRUGS (5)
  1. PECFENT [Suspect]
     Active Substance: FENTANYL CITRATE
     Indication: BREAKTHROUGH PAIN
     Dosage: (400 UG, 100 UG/BOTTLE NASAL)
     Route: 045
  2. FENTANYL (FENTANYL) [Suspect]
     Active Substance: FENTANYL
     Indication: BREAKTHROUGH PAIN
     Dosage: (75 MCG/H TRANSDERMAL)
     Route: 062
  3. PARACETAMOL [Concomitant]
     Active Substance: ACETAMINOPHEN
  4. CODEINE [Concomitant]
     Active Substance: CODEINE
  5. MORPHINE [Suspect]
     Active Substance: MORPHINE
     Indication: PAIN MANAGEMENT
     Route: 048

REACTIONS (11)
  - Odynophagia [None]
  - Lung infection [None]
  - Restlessness [None]
  - Coma [None]
  - Drug dependence [None]
  - Aggression [None]
  - Mucosal inflammation [None]
  - Drug effect decreased [None]
  - Abnormal behaviour [None]
  - Drug abuse [None]
  - Drug withdrawal syndrome [None]
